FAERS Safety Report 6973675-0 (Version None)
Quarter: 2010Q3

REPORT INFORMATION
  Report Type: 
  Country: None (occurrence: None)
  Receive Date: 20100907
  Receipt Date: 20100825
  Transmission Date: 20110219
  Serious: Yes (Other)
  Sender: FDA-Public Use
  Company Number: JHP201000236

PATIENT
  Age: 70 Year
  Sex: Female

DRUGS (7)
  1. EPINEPHRINE [Suspect]
     Indication: DYSPHONIA
     Dosage: 0.3 MG, SINGLE, INTRAVENOUS
     Route: 042
     Dates: start: 20090101, end: 20090101
  2. EPINEPHRINE [Suspect]
     Indication: DYSPNOEA
     Dosage: 0.3 MG, SINGLE, INTRAVENOUS
     Route: 042
     Dates: start: 20090101, end: 20090101
  3. EPINEPHRINE [Suspect]
     Indication: HYPOTENSION
     Dosage: 0.3 MG, SINGLE, INTRAVENOUS
     Route: 042
     Dates: start: 20090101, end: 20090101
  4. EPINEPHRINE [Suspect]
     Indication: LOCAL SWELLING
     Dosage: 0.3 MG, SINGLE, INTRAVENOUS
     Route: 042
     Dates: start: 20090101, end: 20090101
  5. PREDNISOLONE ACETATE [Concomitant]
  6. CLEMASTINE (CLEMASTINE FUMARATE) [Concomitant]
  7. CIMETIDINE [Concomitant]

REACTIONS (6)
  - CHEST DISCOMFORT [None]
  - NAUSEA [None]
  - PALPITATIONS [None]
  - STRESS CARDIOMYOPATHY [None]
  - TACHYCARDIA [None]
  - VOMITING [None]
